FAERS Safety Report 22829179 (Version 2)
Quarter: 2024Q3

REPORT INFORMATION
  Report Type: Report from Study
  Country: US (occurrence: US)
  Receive Date: 20230816
  Receipt Date: 20240716
  Transmission Date: 20241017
  Serious: Yes (Other)
  Sender: AURINIA PHARMACEUTICALS
  Company Number: US-AURINIA PHARMACEUTICALS INC.-AUR-003686

PATIENT
  Age: 30 Year
  Sex: Male

DRUGS (2)
  1. LUPKYNIS [Suspect]
     Active Substance: VOCLOSPORIN
     Indication: Lupus nephritis
     Dosage: 23.7 MILLIGRAM, BID
     Route: 048
     Dates: start: 20230109
  2. LUPKYNIS [Suspect]
     Active Substance: VOCLOSPORIN
     Dosage: 23.7 MILLIGRAM, BID
     Route: 048
     Dates: start: 20230109

REACTIONS (4)
  - Urine protein/creatinine ratio increased [Unknown]
  - Acute kidney injury [Unknown]
  - Hypertension [Not Recovered/Not Resolved]
  - Treatment noncompliance [Unknown]

NARRATIVE: CASE EVENT DATE: 20230222
